FAERS Safety Report 14794855 (Version 12)
Quarter: 2022Q1

REPORT INFORMATION
  Report Type: Spontaneous
  Country: GR (occurrence: GR)
  Receive Date: 20180423
  Receipt Date: 20220314
  Transmission Date: 20220423
  Serious: Yes (Other)
  Sender: FDA-Public Use
  Company Number: GR-MYLANLABS-2018M1026403

PATIENT
  Age: 58 Year
  Sex: Female

DRUGS (14)
  1. NORGESIC [Interacting]
     Active Substance: ASPIRIN\CAFFEINE\ORPHENADRINE CITRATE
     Indication: Myalgia
     Dosage: UNK
     Route: 016
     Dates: start: 20180312
  2. NORGESIC [Interacting]
     Active Substance: ASPIRIN\CAFFEINE\ORPHENADRINE CITRATE
     Dosage: UNK
     Route: 065
     Dates: start: 20180312
  3. NORGESIC [Interacting]
     Active Substance: ASPIRIN\CAFFEINE\ORPHENADRINE CITRATE
     Dosage: UNK
     Route: 016
  4. ACYCLOVIR [Interacting]
     Active Substance: ACYCLOVIR
     Indication: Herpes virus infection
     Dosage: 200 MILLIGRAM, QD
     Route: 065
     Dates: start: 20180310, end: 20180320
  5. ACYCLOVIR [Interacting]
     Active Substance: ACYCLOVIR
     Indication: Herpes virus infection
     Dosage: 200 MILLIGRAM, QD (TABLET)
     Route: 065
     Dates: start: 20180310, end: 20180320
  6. AMOXIL [Interacting]
     Active Substance: AMOXICILLIN
     Indication: Tooth abscess
     Dosage: UNK
     Route: 065
     Dates: start: 20180312, end: 20180318
  7. PANADOL EXTRA [Interacting]
     Active Substance: ACETAMINOPHEN\CAFFEINE
     Indication: Headache
     Dosage: UNK
     Route: 048
     Dates: start: 20180314
  8. PANADOL EXTRA [Interacting]
     Active Substance: ACETAMINOPHEN\CAFFEINE
     Dosage: UNK
     Route: 065
     Dates: start: 20180314
  9. TENORMIN [Interacting]
     Active Substance: ATENOLOL
     Indication: Tachycardia
     Dosage: UNK
     Route: 016
  10. TENORMIN [Interacting]
     Active Substance: ATENOLOL
     Dosage: UNK
     Route: 065
  11. ACECLOFENAC [Interacting]
     Active Substance: ACECLOFENAC
     Indication: Myalgia
     Dosage: UNK
     Route: 065
     Dates: start: 20180312
  12. ACETAMINOPHEN\CODEINE PHOSPHATE [Interacting]
     Active Substance: ACETAMINOPHEN\CODEINE PHOSPHATE
     Indication: Headache
     Dosage: UNK
     Route: 048
     Dates: start: 20180314
  13. ACETAMINOPHEN\CODEINE PHOSPHATE [Interacting]
     Active Substance: ACETAMINOPHEN\CODEINE PHOSPHATE
     Dosage: UNK
     Route: 048
  14. DICLOFENAC SODIUM [Suspect]
     Active Substance: DICLOFENAC SODIUM
     Indication: Myalgia
     Dosage: UNK
     Route: 065
     Dates: start: 20180312

REACTIONS (5)
  - Vitreous detachment [Not Recovered/Not Resolved]
  - Hypoaesthesia [Recovered/Resolved]
  - Drug interaction [Not Recovered/Not Resolved]
  - Vertigo [Recovered/Resolved]
  - Vision blurred [Not Recovered/Not Resolved]

NARRATIVE: CASE EVENT DATE: 20180314
